FAERS Safety Report 16394240 (Version 1)
Quarter: 2019Q2

REPORT INFORMATION
  Report Type: Spontaneous
  Country: FR (occurrence: FR)
  Receive Date: 20190605
  Receipt Date: 20190605
  Transmission Date: 20190711
  Serious: Yes (Other)
  Sender: FDA-Public Use
  Company Number: FR-MYLANLABS-2019M1052551

PATIENT
  Age: 66 Year
  Sex: Male
  Weight: 97 kg

DRUGS (8)
  1. AMIKACINE                          /00391001/ [Concomitant]
     Active Substance: AMIKACIN
     Dosage: UNK
  2. VORICONAZOLE. [Concomitant]
     Active Substance: VORICONAZOLE
     Dosage: UNK
  3. SULFAMETHOXAZOLE [Concomitant]
     Active Substance: SULFAMETHOXAZOLE
     Dosage: UNK
  4. NORADRENALINE MYLAN [Suspect]
     Active Substance: NOREPINEPHRINE\NOREPINEPHRINE BITARTRATE
     Indication: CIRCULATORY COLLAPSE
     Dosage: 0.2 MILLIGRAM PER MILLILITRE
     Route: 041
     Dates: start: 20180609, end: 20180609
  5. TRIMETHOPRIME [Concomitant]
     Active Substance: TRIMETHOPRIM
     Dosage: UNK
  6. IMIPENEM [Concomitant]
     Active Substance: IMIPENEM
     Dosage: UNK
  7. LEVOFLOXACINE                      /01278901/ [Concomitant]
     Active Substance: LEVOFLOXACIN
     Dosage: UNK
  8. CILASTATINE [Concomitant]
     Active Substance: CILASTATIN
     Dosage: UNK

REACTIONS (2)
  - Hypotension [Recovered/Resolved]
  - Incorrect dose administered [Recovered/Resolved]

NARRATIVE: CASE EVENT DATE: 20180609
